FAERS Safety Report 4711213-3 (Version None)
Quarter: 2005Q3

REPORT INFORMATION
  Report Type: 
  Country: None (occurrence: None)
  Receive Date: 20050708
  Receipt Date: 20050623
  Transmission Date: 20060218
  Serious: Yes (Death, Life-Threatening)
  Sender: FDA-Public Use
  Company Number: 2005FR-00056

PATIENT
  Age: 68 Year
  Sex: Female

DRUGS (1)
  1. METFORMIN [Suspect]
     Indication: DIABETES MELLITUS NON-INSULIN-DEPENDENT
     Dosage: 1 G, ORAL
     Route: 048
     Dates: end: 20050407

REACTIONS (4)
  - BLOOD POTASSIUM INCREASED [None]
  - CARDIAC ARREST [None]
  - LACTIC ACIDOSIS [None]
  - RENAL FAILURE [None]
